FAERS Safety Report 25140100 (Version 5)
Quarter: 2025Q2

REPORT INFORMATION
  Report Type: Spontaneous
  Country: US (occurrence: US)
  Receive Date: 20250331
  Receipt Date: 20250604
  Transmission Date: 20250716
  Serious: Yes (Other)
  Sender: ABBVIE
  Company Number: US-ABBVIE-6195863

PATIENT
  Age: 84 Year
  Sex: Female
  Weight: 64 kg

DRUGS (6)
  1. ARMOUR THYROID [Suspect]
     Active Substance: THYROID, PORCINE
     Indication: Autoimmune thyroiditis
     Dosage: 15 MILLIGRAM
     Route: 048
     Dates: start: 20250310, end: 20250321
  2. ARMOUR THYROID [Suspect]
     Active Substance: THYROID, PORCINE
     Indication: Autoimmune thyroiditis
     Dosage: FORM STRENGTH: 30 MG
     Route: 048
     Dates: start: 202503
  3. ARMOUR THYROID [Suspect]
     Active Substance: THYROID, PORCINE
     Indication: Autoimmune thyroiditis
     Route: 048
  4. VITAMIN B12 [Concomitant]
     Active Substance: CYANOCOBALAMIN
     Indication: Vitamin supplementation
  5. VITAMIN D3 [Concomitant]
     Active Substance: CHOLECALCIFEROL
     Indication: Vitamin supplementation
  6. Vision Alive Max [Concomitant]
     Indication: Glaucoma

REACTIONS (18)
  - Loss of consciousness [Recovered/Resolved]
  - Rash erythematous [Recovered/Resolved]
  - Rash erythematous [Not Recovered/Not Resolved]
  - Swollen tongue [Unknown]
  - Product size issue [Recovered/Resolved]
  - Muscle spasms [Recovered/Resolved]
  - Insomnia [Recovered/Resolved]
  - Dizziness [Recovered/Resolved]
  - Swollen tongue [Recovered/Resolved]
  - Mobility decreased [Recovered/Resolved]
  - Thyroid function test abnormal [Not Recovered/Not Resolved]
  - Tremor [Recovered/Resolved]
  - Amnesia [Unknown]
  - Headache [Recovered/Resolved]
  - Nightmare [Recovered/Resolved]
  - Rhinitis [Not Recovered/Not Resolved]
  - Dry skin [Not Recovered/Not Resolved]
  - Off label use [Unknown]

NARRATIVE: CASE EVENT DATE: 20250310
